FAERS Safety Report 16824018 (Version 1)
Quarter: 2019Q3

REPORT INFORMATION
  Report Type: Spontaneous
  Country: IT (occurrence: NO)
  Receive Date: 20190918
  Receipt Date: 20190918
  Transmission Date: 20191005
  Serious: Yes (Hospitalization, Disabling, Other)
  Sender: FDA-Public Use
  Company Number: IT-SUNOVION-2019SUN003875

PATIENT

DRUGS (9)
  1. RISPERDAL [Suspect]
     Active Substance: RISPERIDONE
     Indication: PSYCHOTIC DISORDER
     Route: 065
  2. ABILIFY MAINTENA [Suspect]
     Active Substance: ARIPIPRAZOLE
     Indication: PRODUCT USED FOR UNKNOWN INDICATION
     Route: 065
  3. ABILIFY [Suspect]
     Active Substance: ARIPIPRAZOLE
     Indication: PRODUCT USED FOR UNKNOWN INDICATION
     Route: 065
  4. LATUDA [Suspect]
     Active Substance: LURASIDONE HYDROCHLORIDE
     Indication: PSYCHOTIC DISORDER
     Dosage: THE PATIENT DOESN^T REMEMBER, BUT ESTMATES 10 MG EVERY MORNING
     Route: 048
  5. ZYPREXA [Suspect]
     Active Substance: OLANZAPINE
     Indication: PRODUCT USED FOR UNKNOWN INDICATION
     Route: 065
  6. SUMATRIPTAN BLUEFISH [Concomitant]
  7. FOLIC ACID. [Concomitant]
     Active Substance: FOLIC ACID
  8. ORFIRIL [Concomitant]
     Active Substance: VALPROATE SODIUM
  9. WELLBUTRIN [Concomitant]
     Active Substance: BUPROPION HYDROCHLORIDE
     Indication: ATTENTION DEFICIT/HYPERACTIVITY DISORDER

REACTIONS (11)
  - Migraine [Unknown]
  - Lethargy [Not Recovered/Not Resolved]
  - Cognitive disorder [Unknown]
  - Ill-defined disorder [Unknown]
  - Hypersomnia [Recovering/Resolving]
  - Muscle spasms [Unknown]
  - Fatigue [Not Recovered/Not Resolved]
  - Tic [Recovered/Resolved]
  - Off label use [Not Recovered/Not Resolved]
  - Chills [Unknown]
  - Autism spectrum disorder [Unknown]
